FAERS Safety Report 11030406 (Version 3)
Quarter: 2015Q2

REPORT INFORMATION
  Report Type: Spontaneous
  Country: US (occurrence: None)
  Receive Date: 20150413
  Receipt Date: 20150515
  Transmission Date: 20150821
  Serious: Yes (Hospitalization)
  Sender: FDA-Public Use
  Company Number: US-H14001-15-00527

PATIENT
  Age: 57 Year
  Sex: Female
  Weight: 86.2 kg

DRUGS (23)
  1. ATIVAN [Concomitant]
     Active Substance: LORAZEPAM
  2. ZYPREXA [Concomitant]
     Active Substance: OLANZAPINE
  3. COREG [Concomitant]
     Active Substance: CARVEDILOL
  4. VITAMIN D (ERGOCALCIFEROL) ??? [Concomitant]
  5. VITAMIN B12 (VITAMIN B12 NOS) [Concomitant]
  6. ZOFRAN [Concomitant]
     Active Substance: ONDANSETRON HYDROCHLORIDE
  7. GLYCOLAX/MIRALAX (MACROGOL) [Concomitant]
  8. DECADRON [Concomitant]
     Active Substance: DEXAMETHASONE
  9. KETALAR (KETAMINE HYDROCHLORIDE) [Concomitant]
  10. SYNTHROID [Concomitant]
     Active Substance: LEVOTHYROXINE SODIUM
  11. RITALIN (METHYLPHENIDATE HYDROCHLORIDE) [Concomitant]
     Active Substance: METHYLPHENIDATE HYDROCHLORIDE
  12. CYMBALTA [Concomitant]
     Active Substance: DULOXETINE HYDROCHLORIDE
  13. COMPAZINE [Concomitant]
     Active Substance: PROCHLORPERAZINE MALEATE
  14. VELCADE [Suspect]
     Active Substance: BORTEZOMIB
     Indication: PLASMA CELL MYELOMA
     Route: 058
     Dates: start: 20140317, end: 20150321
  15. VIACTIV (CALCIUM) [Concomitant]
  16. FLONASE [Concomitant]
     Active Substance: FLUTICASONE PROPIONATE
  17. NORCO (VICODIN) [Concomitant]
  18. LEVAQUIN [Concomitant]
     Active Substance: LEVOFLOXACIN
  19. ZOVIRAX [Concomitant]
     Active Substance: ACYCLOVIR
  20. ALBUTEROL HFA (SALBUTAMOL) [Concomitant]
  21. ADRIAMYCIN [Suspect]
     Active Substance: DOXORUBICIN HYDROCHLORIDE
     Indication: PLASMA CELL MYELOMA
     Dosage: (9 MG/KG, DAY 1-4)
     Route: 042
     Dates: start: 20140614, end: 2014
  22. DOLOPHINE (METHADONE HYDROCHLORIDE) [Concomitant]
  23. SENOKOT (SENNOSIDE B) [Concomitant]

REACTIONS (1)
  - Asthma [None]

NARRATIVE: CASE EVENT DATE: 20141015
